FAERS Safety Report 5906276-3 (Version None)
Quarter: 2008Q4

REPORT INFORMATION
  Report Type: 
  Country: None (occurrence: None)
  Receive Date: 20081002
  Receipt Date: 20080923
  Transmission Date: 20090506
  Serious: Yes (Other)
  Sender: FDA-Public Use
  Company Number: US-PFIZER INC-2008080716

PATIENT
  Age: 35 Year
  Sex: Female
  Weight: 115.7 kg

DRUGS (1)
  1. SERTRALINE [Suspect]
     Indication: PREMENSTRUAL SYNDROME
     Dates: start: 20080101

REACTIONS (2)
  - DEAFNESS [None]
  - TINNITUS [None]
